FAERS Safety Report 9282214 (Version 4)
Quarter: 2013Q3

REPORT INFORMATION
  Report Type: Spontaneous
  Country: US (occurrence: US)
  Receive Date: 20130510
  Receipt Date: 20130722
  Transmission Date: 20140515
  Serious: Yes (Death, Hospitalization, Other)
  Sender: FDA-Public Use
  Company Number: US-PFIZER INC-2013143838

PATIENT
  Age: 57 Year
  Sex: Female
  Weight: 54 kg

DRUGS (14)
  1. XALKORI [Suspect]
     Indication: NON-SMALL CELL LUNG CANCER METASTATIC
     Dosage: 250 MG, 2X/DAY
     Dates: start: 20130313
  2. XALKORI [Suspect]
     Dosage: 250 MG, ALTERNATE DAY
     Dates: start: 20130325, end: 20130419
  3. DECADRON [Concomitant]
     Dosage: 2 MG, 2X/DAY
     Route: 048
  4. LASIX [Concomitant]
     Dosage: 20 MG, 1X/DAY
  5. LASIX [Concomitant]
     Dosage: 40 MG, 1X/DAY
  6. GABAPENTIN [Concomitant]
     Dosage: 100 MG, 2X/DAY
     Route: 048
  7. PREDNISONE [Concomitant]
     Dosage: 40 MG, DAILY
     Route: 048
  8. KEPPRA [Concomitant]
     Dosage: 500 MG, 2X/DAY
     Route: 048
  9. PERCOCET [Concomitant]
     Dosage: 1 DF, AS NEEDED (EVERY 4 HOURS IF NEEDED)
  10. MIRALAX [Concomitant]
     Dosage: 1 DF, 1X/DAY
     Route: 048
  11. SENOKOT-S [Concomitant]
     Dosage: 2 DF, AS NEEDED (DAILY)
  12. NEURONTIN [Concomitant]
     Dosage: 300 MG, 3X/DAY
  13. MS CONTIN [Concomitant]
     Dosage: 30 MG, 2X/DAY
     Route: 048
  14. DILAUDID [Concomitant]
     Dosage: 2 MG, AS NEEDED (EVERY 4-6 HOURS)

REACTIONS (18)
  - Death [Fatal]
  - Pyrexia [Unknown]
  - Dyspnoea [Unknown]
  - Cough [Unknown]
  - Pain in extremity [Unknown]
  - Pancytopenia [Recovering/Resolving]
  - Diarrhoea [Recovered/Resolved]
  - Oral candidiasis [Recovered/Resolved]
  - Hyperhidrosis [Unknown]
  - Asthenia [Unknown]
  - Headache [Unknown]
  - Constipation [Unknown]
  - Pain [Unknown]
  - Transaminases increased [Unknown]
  - Pneumonitis [Unknown]
  - Oedema peripheral [Unknown]
  - Disease progression [Unknown]
  - Non-small cell lung cancer metastatic [Unknown]
